FAERS Safety Report 5078266-7 (Version None)
Quarter: 2006Q3

REPORT INFORMATION
  Report Type: 
  Country: None (occurrence: None)
  Receive Date: 20060811
  Receipt Date: 20060802
  Transmission Date: 20061208
  Serious: Yes (Life-Threatening)
  Sender: FDA-Public Use
  Company Number: AU-ROCHE-458292

PATIENT
  Age: 51 Year
  Sex: Female

DRUGS (6)
  1. CEFTRIAXONE SODIUM [Suspect]
     Indication: PREMEDICATION
     Dosage: FORM REPORTED AS INJECTION, POWDER.
     Route: 065
     Dates: start: 20060311
  2. MIDAZOLAM [Suspect]
     Indication: SENSORY DISTURBANCE
     Route: 065
     Dates: start: 20060311
  3. FENTANYL [Suspect]
     Indication: SENSORY DISTURBANCE
     Route: 065
     Dates: start: 20060311
  4. DEXAMETHASONE TAB [Suspect]
     Indication: SENSORY DISTURBANCE
     Route: 065
     Dates: start: 20060311
  5. PROPOFOL [Suspect]
     Indication: SENSORY DISTURBANCE
     Route: 065
     Dates: start: 20060311
  6. ROCURONIUM BROMIDE [Suspect]
     Indication: SENSORY DISTURBANCE
     Route: 065
     Dates: start: 20060311

REACTIONS (3)
  - ANAPHYLACTIC REACTION [None]
  - PALLOR [None]
  - WHEEZING [None]
